FAERS Safety Report 5337839-4 (Version None)
Quarter: 2007Q2

REPORT INFORMATION
  Report Type: 
  Country: None (occurrence: None)
  Receive Date: 20070308
  Receipt Date: 20061213
  Transmission Date: 20071010
  Serious: No
  Sender: FDA-Public Use
  Company Number: 2006-BP-14517BP

PATIENT
  Sex: Female

DRUGS (8)
  1. SPIRIVA [Suspect]
     Indication: BRONCHIECTASIS
     Dosage: 18 MCG (18 MCG), IH
     Route: 055
     Dates: start: 20061001, end: 20061212
  2. LIPITOR [Concomitant]
  3. SYNTHROID [Concomitant]
  4. PLAVIX [Concomitant]
  5. TOPROL-XL [Concomitant]
  6. ZETIA [Concomitant]
  7. PREVACID [Concomitant]
  8. BONIVA (IBANDRONATE SODIUM) [Concomitant]

REACTIONS (3)
  - BURNING SENSATION [None]
  - VAGINAL BURNING SENSATION [None]
  - VULVOVAGINAL DISCOMFORT [None]
